FAERS Safety Report 7329770-X (Version None)
Quarter: 2011Q1

REPORT INFORMATION
  Report Type: 
  Country: None (occurrence: None)
  Receive Date: 20110303
  Receipt Date: 20110223
  Transmission Date: 20110831
  Serious: Yes (Death, Hospitalization)
  Sender: FDA-Public Use
  Company Number: US-BAXTER-2011BH003667

PATIENT
  Age: 63 Year
  Sex: Female

DRUGS (1)
  1. DIANEAL [Suspect]
     Indication: PERITONEAL DIALYSIS
     Route: 033
     Dates: end: 20110214

REACTIONS (3)
  - PERITONEAL EFFLUENT ABNORMAL [None]
  - SEPSIS [None]
  - PERITONEAL CLOUDY EFFLUENT [None]
